FAERS Safety Report 21315479 (Version 17)
Quarter: 2023Q2

REPORT INFORMATION
  Report Type: Report from Study
  Country: KR (occurrence: KR)
  Receive Date: 20220909
  Receipt Date: 20230615
  Transmission Date: 20230722
  Serious: Yes (Hospitalization)
  Sender: FDA-Public Use
  Company Number: KR-JNJFOC-20220830832

PATIENT
  Age: 37 Year
  Sex: Male
  Weight: 83.7 kg

DRUGS (91)
  1. DARATUMUMAB [Suspect]
     Active Substance: DARATUMUMAB
     Indication: Plasma cell myeloma
     Route: 058
     Dates: start: 20220809, end: 20220915
  2. AMINO ACIDS\CARBOHYDRATES\MINERALS\VITAMINS [Concomitant]
     Active Substance: AMINO ACIDS\CARBOHYDRATES\MINERALS\VITAMINS
     Indication: Nutritional supplementation
     Route: 042
     Dates: start: 20221010, end: 20221011
  3. AMINO ACIDS\CARBOHYDRATES\MINERALS\VITAMINS [Concomitant]
     Active Substance: AMINO ACIDS\CARBOHYDRATES\MINERALS\VITAMINS
     Route: 042
     Dates: start: 20221012
  4. HUMAN IMMUNOGLOBULIN G [Concomitant]
     Active Substance: HUMAN IMMUNOGLOBULIN G
     Indication: Infection prophylaxis
     Route: 042
     Dates: start: 20221011, end: 20221012
  5. VITAFEROL [TOCOPHERYL ACETATE] [Concomitant]
     Indication: Osteoporosis prophylaxis
     Route: 048
     Dates: start: 20220513, end: 20220921
  6. ACETAMINOPHEN\TRAMADOL [Concomitant]
     Active Substance: ACETAMINOPHEN\TRAMADOL
     Indication: Back pain
     Route: 048
     Dates: start: 20220527
  7. ACETAMINOPHEN [Concomitant]
     Active Substance: ACETAMINOPHEN
     Indication: Fatigue
     Route: 048
     Dates: start: 20220811, end: 20220811
  8. ACETAMINOPHEN [Concomitant]
     Active Substance: ACETAMINOPHEN
     Indication: Prophylaxis
     Route: 048
     Dates: start: 20220823, end: 20220829
  9. ACETAMINOPHEN [Concomitant]
     Active Substance: ACETAMINOPHEN
     Indication: Antipyresis
     Route: 048
     Dates: start: 20220915, end: 20220928
  10. ACETAMINOPHEN [Concomitant]
     Active Substance: ACETAMINOPHEN
     Indication: Pain
     Route: 048
     Dates: start: 20220816, end: 20220822
  11. ACETAMINOPHEN [Concomitant]
     Active Substance: ACETAMINOPHEN
     Dates: start: 20221010, end: 20221012
  12. TRAMADOL HYDROCHLORIDE [Concomitant]
     Active Substance: TRAMADOL HYDROCHLORIDE
     Indication: Myalgia
     Route: 042
     Dates: start: 20220829, end: 20220829
  13. TRAMADOL HYDROCHLORIDE [Concomitant]
     Active Substance: TRAMADOL HYDROCHLORIDE
     Indication: Fatigue
     Route: 042
     Dates: start: 20220813, end: 20220813
  14. SULFAMETHOXAZOLE\TRIMETHOPRIM [Concomitant]
     Active Substance: SULFAMETHOXAZOLE\TRIMETHOPRIM
     Indication: Infection prophylaxis
     Route: 048
     Dates: start: 20220904
  15. SULFAMETHOXAZOLE\TRIMETHOPRIM [Concomitant]
     Active Substance: SULFAMETHOXAZOLE\TRIMETHOPRIM
     Route: 048
     Dates: start: 20220809, end: 20220813
  16. LEVOFLOXACIN [Concomitant]
     Active Substance: LEVOFLOXACIN
     Indication: Infection prophylaxis
     Route: 048
     Dates: start: 20220809, end: 20220829
  17. MEGESTROL [Concomitant]
     Active Substance: MEGESTROL
     Indication: Decreased appetite
     Route: 048
     Dates: start: 20220906, end: 20220921
  18. PLATELETS [Concomitant]
     Active Substance: HUMAN PLATELET, ALLOGENIC
     Indication: Platelet count decreased
     Route: 042
     Dates: start: 20220906, end: 20220906
  19. METOCLOPRAMIDE [Concomitant]
     Active Substance: METOCLOPRAMIDE
     Indication: Nausea
     Route: 042
     Dates: start: 20220813, end: 20220813
  20. ENCOVER [Concomitant]
     Indication: Nutritional supplementation
     Route: 048
     Dates: start: 20220823, end: 20220902
  21. ENCOVER [Concomitant]
     Route: 048
     Dates: start: 20220823, end: 20220902
  22. FUROSEMIDE [Concomitant]
     Active Substance: FUROSEMIDE
     Indication: Fluid retention
     Route: 042
     Dates: start: 20220831, end: 20220902
  23. DEXTROSE [Concomitant]
     Active Substance: DEXTROSE\DEXTROSE MONOHYDRATE
     Indication: Nutritional supplementation
     Route: 042
     Dates: start: 20220923, end: 20220927
  24. DEXTROSE [Concomitant]
     Active Substance: DEXTROSE\DEXTROSE MONOHYDRATE
     Route: 042
     Dates: start: 20221011, end: 20221012
  25. ALBUMIN HUMAN [Concomitant]
     Active Substance: ALBUMIN HUMAN
     Indication: Nutritional supplementation
     Route: 042
     Dates: start: 20220924, end: 20220924
  26. ALBUMIN HUMAN [Concomitant]
     Active Substance: ALBUMIN HUMAN
     Route: 042
     Dates: start: 20220902, end: 20220902
  27. FAT EMULSION NOS [Concomitant]
     Active Substance: EGG PHOSPHOLIPIDS\SAFFLOWER OIL\SOYBEAN OIL
     Indication: Nutritional supplementation
     Route: 042
     Dates: start: 20220829, end: 20220902
  28. LIDOCAINE [Concomitant]
     Active Substance: LIDOCAINE
     Indication: Anaesthesia
     Route: 062
     Dates: start: 20220923, end: 20220923
  29. LIDOCAINE [Concomitant]
     Active Substance: LIDOCAINE
     Indication: Local anaesthesia
     Route: 062
     Dates: start: 20220927, end: 20220927
  30. SODIUM BICARBONATE [Concomitant]
     Active Substance: SODIUM BICARBONATE
     Indication: Electrolyte substitution therapy
     Route: 042
     Dates: start: 20221005, end: 20221005
  31. SODIUM BICARBONATE [Concomitant]
     Active Substance: SODIUM BICARBONATE
     Route: 042
     Dates: start: 20221006, end: 20221009
  32. HEPATAMINE [ARGININE;BETA-ALANINE;CYSTEINE HYDROCHLORIDE;GLYCINE;HISTI [Concomitant]
     Indication: Nutritional supplementation
     Route: 042
     Dates: start: 20220923, end: 20220925
  33. HEPATAMINE [ARGININE;BETA-ALANINE;CYSTEINE HYDROCHLORIDE;GLYCINE;HISTI [Concomitant]
     Route: 042
     Dates: start: 20220927, end: 20220927
  34. ALLOPURINOL [Concomitant]
     Active Substance: ALLOPURINOL
     Indication: Prophylaxis
     Route: 048
     Dates: start: 20221006, end: 20221008
  35. ALLOPURINOL [Concomitant]
     Active Substance: ALLOPURINOL
     Route: 048
     Dates: start: 20221009, end: 20221009
  36. ALLOPURINOL [Concomitant]
     Active Substance: ALLOPURINOL
     Route: 048
     Dates: start: 20221005, end: 20221005
  37. ACYCLOVIR [Concomitant]
     Active Substance: ACYCLOVIR
     Indication: C-reactive protein increased
     Route: 042
     Dates: start: 20221010, end: 20221010
  38. ACYCLOVIR [Concomitant]
     Active Substance: ACYCLOVIR
     Route: 042
     Dates: start: 20221011, end: 20221015
  39. CALCIUM GLUCONATE [Concomitant]
     Active Substance: CALCIUM GLUCONATE
     Indication: Mineral supplementation
     Route: 042
     Dates: start: 20220926, end: 20220926
  40. CALCIUM GLUCONATE [Concomitant]
     Active Substance: CALCIUM GLUCONATE
     Route: 042
     Dates: start: 20221002, end: 20221002
  41. CALCIUM GLUCONATE [Concomitant]
     Active Substance: CALCIUM GLUCONATE
     Route: 042
     Dates: start: 20221005, end: 20221005
  42. CALCIUM GLUCONATE [Concomitant]
     Active Substance: CALCIUM GLUCONATE
     Route: 042
     Dates: start: 20221007, end: 20221008
  43. CIMETROPIUM BROMIDE [Concomitant]
     Active Substance: CIMETROPIUM BROMIDE
     Indication: Premedication
     Dates: start: 20220927, end: 20220927
  44. PHENIRAMINE [Concomitant]
     Active Substance: PHENIRAMINE
     Indication: Premedication
     Route: 042
     Dates: start: 20221004, end: 20221004
  45. PHENIRAMINE [Concomitant]
     Active Substance: PHENIRAMINE
     Indication: Prophylaxis
     Route: 042
     Dates: start: 20221011, end: 20221012
  46. FOSAPREPITANT [Concomitant]
     Active Substance: FOSAPREPITANT
     Indication: Prophylaxis of nausea and vomiting
     Route: 042
     Dates: start: 20221005, end: 20221005
  47. HEPAMERZ [ORNITHINE] [Concomitant]
     Indication: Aspartate aminotransferase increased
     Route: 042
     Dates: start: 20220915, end: 20220915
  48. HEPAMERZ [ORNITHINE] [Concomitant]
     Route: 042
     Dates: start: 20220829, end: 20220829
  49. HEPAMERZ [ORNITHINE] [Concomitant]
     Route: 042
     Dates: start: 20220830, end: 20220830
  50. HEPAMERZ [ORNITHINE] [Concomitant]
     Route: 042
     Dates: start: 20220831, end: 20220831
  51. HEPAMERZ [ORNITHINE] [Concomitant]
     Route: 042
     Dates: start: 20220901, end: 20220902
  52. HEPAMERZ [ORNITHINE] [Concomitant]
     Route: 042
     Dates: start: 20220903, end: 20220903
  53. HEPAMERZ [ORNITHINE] [Concomitant]
     Route: 042
     Dates: start: 20220829, end: 20220902
  54. HEPAMERZ [ORNITHINE] [Concomitant]
     Route: 042
     Dates: start: 20220812, end: 20220813
  55. PREGABALIN [Concomitant]
     Active Substance: PREGABALIN
     Indication: Paraesthesia
     Route: 048
     Dates: start: 20220722, end: 20220811
  56. HEPARIN [Concomitant]
     Active Substance: HEPARIN SODIUM
     Indication: Catheter management
     Route: 042
     Dates: start: 20220812, end: 20220812
  57. POTASSIUM CHLORIDE [Concomitant]
     Active Substance: POTASSIUM CHLORIDE
     Indication: Nutritional supplementation
     Route: 042
     Dates: start: 20220812, end: 20220813
  58. ELECTROLYTES WITH CARBOHYDRATES [Concomitant]
     Indication: Electrolyte substitution therapy
     Route: 042
     Dates: start: 20220812, end: 20221010
  59. TAMIPOOL [VITAMINS NOS] [Concomitant]
     Indication: Nutritional supplementation
     Route: 042
     Dates: start: 20220812, end: 20220813
  60. TAMIPOOL [VITAMINS NOS] [Concomitant]
     Route: 042
     Dates: start: 20220915, end: 20220916
  61. TAMIPOOL [VITAMINS NOS] [Concomitant]
     Route: 042
     Dates: start: 20220829, end: 20220902
  62. PROPACETAMOL HYDROCHLORIDE [Concomitant]
     Active Substance: PROPACETAMOL HYDROCHLORIDE
     Indication: Myalgia
     Route: 042
     Dates: start: 20220829, end: 20220829
  63. MORPHINE HYDROCHLORIDE [Concomitant]
     Active Substance: MORPHINE HYDROCHLORIDE
     Indication: Pain
     Route: 042
     Dates: start: 20220829, end: 20220829
  64. MORPHINE HYDROCHLORIDE [Concomitant]
     Active Substance: MORPHINE HYDROCHLORIDE
     Route: 042
     Dates: start: 20220901, end: 20220901
  65. MORPHINE HYDROCHLORIDE [Concomitant]
     Active Substance: MORPHINE HYDROCHLORIDE
     Route: 042
     Dates: start: 20220830, end: 20220830
  66. MORPHINE HYDROCHLORIDE [Concomitant]
     Active Substance: MORPHINE HYDROCHLORIDE
     Route: 042
     Dates: start: 20220831, end: 20220831
  67. MORPHINE HYDROCHLORIDE [Concomitant]
     Active Substance: MORPHINE HYDROCHLORIDE
     Route: 042
     Dates: start: 20220902, end: 20220902
  68. CALCIUM CHLORIDE [Concomitant]
     Active Substance: CALCIUM CHLORIDE
     Indication: Hypocalcaemia
     Route: 042
     Dates: start: 20220831, end: 20220831
  69. CALCIUM CHLORIDE [Concomitant]
     Active Substance: CALCIUM CHLORIDE
     Route: 042
     Dates: start: 20221002, end: 20221002
  70. CALCIUM CHLORIDE [Concomitant]
     Active Substance: CALCIUM CHLORIDE
     Route: 042
     Dates: start: 20220902, end: 20220902
  71. ELECTROLYTES WITH CARBOHYDRATES [Concomitant]
     Indication: Nutritional supplementation
     Route: 042
     Dates: start: 20220812, end: 20221010
  72. ELECTROLYTES WITH CARBOHYDRATES [Concomitant]
     Route: 042
     Dates: start: 20221012, end: 20221012
  73. ELECTROLYTES WITH CARBOHYDRATES [Concomitant]
     Route: 042
     Dates: start: 20220829, end: 20220902
  74. ELECTROLYTES WITH CARBOHYDRATES [Concomitant]
     Route: 042
     Dates: start: 20220928, end: 20221004
  75. ELECTROLYTES WITH CARBOHYDRATES [Concomitant]
     Route: 042
     Dates: start: 20220924, end: 20220927
  76. ELECTROLYTES WITH CARBOHYDRATES [Concomitant]
     Route: 042
     Dates: start: 20221005, end: 20221008
  77. ELECTROLYTES WITH CARBOHYDRATES [Concomitant]
     Route: 042
     Dates: start: 20221009
  78. FAMOTIDINE [Concomitant]
     Active Substance: FAMOTIDINE
     Indication: Oesophagitis
     Route: 048
     Dates: start: 20220923, end: 20220923
  79. FAMOTIDINE [Concomitant]
     Active Substance: FAMOTIDINE
     Indication: Oral candidiasis
  80. CARBOHYDRATES [Concomitant]
     Active Substance: CARBOHYDRATES
     Indication: Nutritional supplementation
     Route: 042
     Dates: start: 20220829, end: 20220829
  81. CARBOHYDRATES [Concomitant]
     Active Substance: CARBOHYDRATES
     Route: 042
     Dates: start: 20220924, end: 20220927
  82. CARBOHYDRATES [Concomitant]
     Active Substance: CARBOHYDRATES
     Route: 042
     Dates: start: 20220928, end: 20221004
  83. CARBOHYDRATES [Concomitant]
     Active Substance: CARBOHYDRATES
     Route: 042
     Dates: start: 20221005, end: 20221008
  84. CARBOHYDRATES [Concomitant]
     Active Substance: CARBOHYDRATES
     Route: 042
     Dates: start: 20221005, end: 20221008
  85. CARBOHYDRATES [Concomitant]
     Active Substance: CARBOHYDRATES
     Route: 042
     Dates: start: 20221009
  86. PANTOPRAZOLE [Concomitant]
     Active Substance: PANTOPRAZOLE
     Indication: Oral candidiasis
  87. PANTOPRAZOLE [Concomitant]
     Active Substance: PANTOPRAZOLE
     Indication: Oesophagitis
  88. FUROSEMIDE [Concomitant]
     Active Substance: FUROSEMIDE
     Indication: Fluid imbalance
     Route: 042
  89. NICARDIPINE [Concomitant]
     Active Substance: NICARDIPINE
     Indication: Hypertension
  90. CASPOFUNGIN [Concomitant]
     Active Substance: CASPOFUNGIN
     Indication: Oral candidiasis
     Route: 042
     Dates: start: 20221014, end: 20221014
  91. CASPOFUNGIN [Concomitant]
     Active Substance: CASPOFUNGIN
     Route: 042
     Dates: start: 20221015

REACTIONS (2)
  - Pyrexia [Not Recovered/Not Resolved]
  - Febrile neutropenia [Recovered/Resolved]

NARRATIVE: CASE EVENT DATE: 20220812
